FAERS Safety Report 16592030 (Version 2)
Quarter: 2019Q3

REPORT INFORMATION
  Report Type: Report from Study
  Country: US (occurrence: US)
  Receive Date: 20190718
  Receipt Date: 20190916
  Transmission Date: 20191004
  Serious: Yes (Hospitalization, Other)
  Sender: FDA-Public Use
  Company Number: US-BAYER-2019-118896

PATIENT
  Age: 74 Year
  Sex: Female

DRUGS (5)
  1. NEXAVAR [Suspect]
     Active Substance: SORAFENIB
     Indication: HEPATOCELLULAR CARCINOMA
     Dosage: 400 MG, BID
     Route: 048
     Dates: start: 20190216, end: 2019
  2. NEXAVAR [Suspect]
     Active Substance: SORAFENIB
     Indication: HEPATOCELLULAR CARCINOMA
     Dosage: 200 MG, BID
     Route: 048
     Dates: start: 201906, end: 20190701
  3. TACROLIMUS. [Concomitant]
     Active Substance: TACROLIMUS
     Dosage: UNK
  4. NEXAVAR [Suspect]
     Active Substance: SORAFENIB
     Indication: HEPATOCELLULAR CARCINOMA
     Dosage: 200 MG, BID
     Route: 048
     Dates: start: 20190712, end: 20190723
  5. HCTZ [Concomitant]
     Active Substance: HYDROCHLOROTHIAZIDE
     Indication: BLOOD PRESSURE INCREASED
     Dosage: 50 MG, BID

REACTIONS (16)
  - Oedema peripheral [Recovering/Resolving]
  - Blood pressure increased [Not Recovered/Not Resolved]
  - Abdominal discomfort [Not Recovered/Not Resolved]
  - Blood potassium increased [Unknown]
  - Lethargy [Unknown]
  - Decreased appetite [None]
  - Renal impairment [Recovering/Resolving]
  - Blood creatinine increased [Recovering/Resolving]
  - Vomiting [Not Recovered/Not Resolved]
  - Diarrhoea [Not Recovered/Not Resolved]
  - Blood creatinine increased [Unknown]
  - Blood magnesium decreased [Recovering/Resolving]
  - Dehydration [Unknown]
  - Hospitalisation [None]
  - Decreased appetite [Not Recovered/Not Resolved]
  - Retching [Unknown]

NARRATIVE: CASE EVENT DATE: 20190701
